FAERS Safety Report 11520096 (Version 1)
Quarter: 2015Q3

REPORT INFORMATION
  Report Type: Spontaneous
  Country: US (occurrence: US)
  Receive Date: 20150918
  Receipt Date: 20150918
  Transmission Date: 20151125
  Serious: No
  Sender: FDA-Public Use
  Company Number: US-RB-071556-14

PATIENT

DRUGS (1)
  1. MUCINEX [Suspect]
     Active Substance: GUAIFENESIN
     Indication: PRODUCT USED FOR UNKNOWN INDICATION
     Dosage: 600MG. PATIENT TOOK DRUG AT A DOSE OF 1 OR 2 TABLETS EVERY 6 HOURS AND HIS LAST DOSE WAS ON 04-DEC-2
     Route: 065
     Dates: start: 20141201

REACTIONS (3)
  - Dry throat [Recovered/Resolved]
  - Ear pain [Recovered/Resolved]
  - Inappropriate schedule of drug administration [Recovered/Resolved]

NARRATIVE: CASE EVENT DATE: 20141201
